FAERS Safety Report 6517958-7 (Version None)
Quarter: 2009Q4

REPORT INFORMATION
  Report Type: 
  Country: None (occurrence: None)
  Receive Date: 20091224
  Receipt Date: 20091216
  Transmission Date: 20100525
  Serious: Yes (Other)
  Sender: FDA-Public Use
  Company Number: HU-ELI_LILLY_AND_COMPANY-HU200912003930

PATIENT
  Age: 31 Year
  Sex: Male

DRUGS (1)
  1. ZYPADHERA [Suspect]
     Indication: SCHIZOPHRENIA, PARANOID TYPE
     Dosage: 300 MG, EVERY TWO WEEKS
     Route: 030
     Dates: start: 20091117

REACTIONS (4)
  - DIZZINESS [None]
  - DYSARTHRIA [None]
  - NYSTAGMUS [None]
  - TONGUE PARALYSIS [None]
